FAERS Safety Report 4322448-6 (Version None)
Quarter: 2004Q1

REPORT INFORMATION
  Report Type: 
  Country: None (occurrence: None)
  Receive Date: 20040319
  Receipt Date: 20040312
  Transmission Date: 20041129
  Serious: Yes (Hospitalization)
  Sender: FDA-Public Use
  Company Number: 2004-DE-01073GD (0)

PATIENT
  Age: 40 Year
  Sex: Male

DRUGS (2)
  1. CYCLOPHOSPHAMIDE [Suspect]
     Indication: IMMUNOSUPPRESSION
     Dosage: PULSED (NR),
  2. METHYLPREDNISOLONE [Suspect]
     Indication: IMMUNOSUPPRESSION
     Dosage: PULSED (NR),

REACTIONS (2)
  - HAEMODIALYSIS [None]
  - PNEUMONIA [None]
